FAERS Safety Report 6270088-4 (Version None)
Quarter: 2009Q3

REPORT INFORMATION
  Report Type: 
  Country: None (occurrence: None)
  Receive Date: 20090716
  Receipt Date: 20090710
  Transmission Date: 20100115
  Serious: No
  Sender: FDA-Public Use
  Company Number: US-B.I. PHARMACEUTICALS,INC./RIDGEFIELD-2009-BP-07630BP

PATIENT
  Age: 42 Year
  Sex: Female

DRUGS (3)
  1. AGGRENOX [Suspect]
     Route: 048
     Dates: start: 20090601
  2. VERAPAMIL [Concomitant]
     Dosage: 80 MG
  3. TOPAMAX [Concomitant]
     Dosage: 50 MG

REACTIONS (1)
  - CHROMATURIA [None]
